FAERS Safety Report 5688178-3 (Version None)
Quarter: 2008Q1

REPORT INFORMATION
  Report Type: 
  Country: None (occurrence: None)
  Receive Date: 20080327
  Receipt Date: 20080320
  Transmission Date: 20080703
  Serious: Yes (Death, Hospitalization)
  Sender: FDA-Public Use
  Company Number: 2008-00972

PATIENT
  Age: 45 Year
  Sex: Male
  Weight: 58.6 kg

DRUGS (14)
  1. VELCADE [Suspect]
     Indication: MULTIPLE MYELOMA
     Dosage: 1.30 MG/M2, INTRAVENOUS
     Route: 042
     Dates: start: 20060902, end: 20061112
  2. DEXAMETHASONE [Concomitant]
  3. MAGMIL (MAGNESIUM HYDROXIDE) [Concomitant]
  4. OXYCONTIN [Concomitant]
  5. PHLOROGLUCINOL (PHLOROGLUCINOL) [Concomitant]
  6. TRIDOL (TRAMADOL HYDROCHLORIDE) [Concomitant]
  7. ULTRACET [Concomitant]
  8. DOXORUBICIN HYDROCHLORIDE [Concomitant]
  9. LACTITOL (LACTITOL) [Concomitant]
  10. RULID (ROXITHROMYCIN) [Concomitant]
  11. CEFTRIAXONE [Concomitant]
  12. SUDAFED 12 HOUR [Concomitant]
  13. FLUCONAZOLE [Concomitant]
  14. NIFEDIPINE [Concomitant]

REACTIONS (3)
  - CONDITION AGGRAVATED [None]
  - MULTIPLE MYELOMA [None]
  - THROMBOCYTOPENIA [None]
